FAERS Safety Report 4384722-7 (Version None)
Quarter: 2004Q2

REPORT INFORMATION
  Report Type: 
  Country: None (occurrence: None)
  Receive Date: 20040621
  Receipt Date: 20040615
  Transmission Date: 20050107
  Serious: Yes (Life-Threatening, Hospitalization, Disabling)
  Sender: FDA-Public Use
  Company Number: 2004UW12434

PATIENT
  Age: 80 Year
  Sex: Male
  Weight: 58 kg

DRUGS (6)
  1. IRESSA [Suspect]
     Indication: NON-SMALL CELL LUNG CANCER
     Dosage: 250 MG QD PO
     Route: 048
     Dates: start: 20040309
  2. OXCARBAZEPINE [Concomitant]
  3. LEVODOPA BENSERAZIDE HYDROCHLO [Concomitant]
  4. DOMPERIDONE [Concomitant]
  5. OMEPRAZOLE [Concomitant]
  6. CELEBREX [Concomitant]

REACTIONS (4)
  - CRANIAL NEUROPATHY [None]
  - FACIAL NERVE DISORDER [None]
  - GLOSSOPHARYNGEAL NERVE DISORDER [None]
  - ISCHAEMIC STROKE [None]
